FAERS Safety Report 15368247 (Version 1)
Quarter: 2018Q3

REPORT INFORMATION
  Report Type: Spontaneous
  Country: FR (occurrence: FR)
  Receive Date: 20180910
  Receipt Date: 20180910
  Transmission Date: 20181010
  Serious: Yes (Hospitalization)
  Sender: FDA-Public Use
  Company Number: FR-ANIPHARMA-2018-FR-000135

PATIENT
  Age: 63 Year
  Sex: Male
  Weight: 101 kg

DRUGS (13)
  1. PREDNISOLONE. [Suspect]
     Active Substance: PREDNISOLONE
     Dosage: 25 MG DAILY
     Route: 048
     Dates: start: 20171212, end: 20171214
  2. CANDESARTAN HCT [Suspect]
     Active Substance: CANDESARTAN CILEXETIL\HYDROCHLOROTHIAZIDE
     Indication: HYPERTENSION
     Dosage: 16/12.5 MG DAILY
     Route: 048
     Dates: end: 20171227
  3. CORDARONE [Concomitant]
     Active Substance: AMIODARONE HYDROCHLORIDE
  4. CANDESARTAN. [Suspect]
     Active Substance: CANDESARTAN
     Indication: HYPERTENSION
     Dosage: 16 MG DAILY
     Route: 048
     Dates: end: 20171227
  5. SPIRIVA [Concomitant]
     Active Substance: TIOTROPIUM BROMIDE MONOHYDRATE
     Dosage: UNK
     Route: 065
  6. CISPLATIN. [Suspect]
     Active Substance: CISPLATIN
     Route: 042
     Dates: start: 20171213, end: 20171213
  7. ALIMTA [Suspect]
     Active Substance: PEMETREXED DISODIUM
     Route: 042
     Dates: start: 20171213, end: 20171213
  8. BISOPROLOL [Concomitant]
     Active Substance: BISOPROLOL
     Dosage: UNK
     Route: 065
  9. LERCANIDIPINE [Concomitant]
     Active Substance: LERCANIDIPINE
     Dosage: UNK
     Route: 065
  10. INNOHEP [Suspect]
     Active Substance: TINZAPARIN SODIUM
     Dosage: 1 DF DAILY
     Route: 058
     Dates: start: 201711, end: 20171227
  11. AVASTIN [Suspect]
     Active Substance: BEVACIZUMAB
     Route: 042
     Dates: start: 20171213, end: 20171213
  12. SPECIAFOLDINE [Concomitant]
     Active Substance: FOLIC ACID
  13. METFORMIN [Suspect]
     Active Substance: METFORMIN HYDROCHLORIDE
     Dosage: 2550 MG DAILY
     Route: 048
     Dates: end: 20171227

REACTIONS (4)
  - Metabolic acidosis [Recovered/Resolved]
  - Diarrhoea [Recovered/Resolved]
  - Acute kidney injury [Recovered/Resolved with Sequelae]
  - Hyperkalaemia [Recovered/Resolved]

NARRATIVE: CASE EVENT DATE: 201712
